FAERS Safety Report 11245768 (Version 4)
Quarter: 2015Q4

REPORT INFORMATION
  Report Type: Spontaneous
  Country: US (occurrence: US)
  Receive Date: 20150707
  Receipt Date: 20151015
  Transmission Date: 20160304
  Serious: No
  Sender: FDA-Public Use
  Company Number: US-ACTELION-A-NJ2015-120311

PATIENT
  Age: 55 Year
  Sex: Male

DRUGS (5)
  1. SILDENAFIL. [Concomitant]
     Active Substance: SILDENAFIL
     Dosage: 20 MG, TID
     Dates: start: 20140328
  2. OPSUMIT [Suspect]
     Active Substance: MACITENTAN
     Indication: PULMONARY HYPERTENSION
     Dosage: 10 MG, QD
     Route: 048
     Dates: start: 20141124, end: 20150223
  3. OXYGEN. [Concomitant]
     Active Substance: OXYGEN
     Dosage: UNK, 24 HR/DAY
     Dates: start: 20140423
  4. FUROSEMIDE. [Concomitant]
     Active Substance: FUROSEMIDE
     Dosage: 120 MG, QD
  5. SPIRONOLACTONE. [Concomitant]
     Active Substance: SPIRONOLACTONE
     Dosage: 25 MG, BID

REACTIONS (1)
  - Breast tenderness [Recovered/Resolved]

NARRATIVE: CASE EVENT DATE: 201411
